FAERS Safety Report 6170737-5 (Version None)
Quarter: 2009Q2

REPORT INFORMATION
  Report Type: 
  Country: None (occurrence: None)
  Receive Date: 20090428
  Receipt Date: 20090323
  Transmission Date: 20091009
  Serious: Yes (Life-Threatening)
  Sender: FDA-Public Use
  Company Number: FI-GENENTECH-279109

PATIENT
  Sex: Male

DRUGS (4)
  1. AVASTIN [Suspect]
     Indication: COLORECTAL CANCER
     Dosage: 610 MG, Q3W
     Route: 042
     Dates: start: 20090119
  2. XELODA [Suspect]
     Indication: COLORECTAL CANCER
     Dosage: 3000 MG, QD
     Route: 048
     Dates: start: 20090119
  3. IRINOTECAN HCL [Concomitant]
     Indication: DRUG USE FOR UNKNOWN INDICATION
     Dosage: UNK
     Dates: start: 20090119
  4. RAMIPRIL W/ HYDROCHLOROTHIAZIDE [Concomitant]
     Indication: DRUG USE FOR UNKNOWN INDICATION
     Dosage: UNK

REACTIONS (3)
  - CONFUSIONAL STATE [None]
  - FEBRILE NEUTROPENIA [None]
  - VENTRICULAR FIBRILLATION [None]
